FAERS Safety Report 8481055-4 (Version None)
Quarter: 2012Q3

REPORT INFORMATION
  Report Type: 
  Country: None (occurrence: None)
  Receive Date: 20120702
  Receipt Date: 20120625
  Transmission Date: 20120928
  Serious: Yes (Other)
  Sender: FDA-Public Use
  Company Number: PHHY2012AU055498

PATIENT
  Sex: Female

DRUGS (1)
  1. FEMARA [Suspect]
     Dosage: UNK UKN, UNK
     Dates: start: 20110601

REACTIONS (9)
  - SKIN EXFOLIATION [None]
  - DIZZINESS [None]
  - EYE SWELLING [None]
  - GENERALISED ERYTHEMA [None]
  - DRY SKIN [None]
  - ERYTHEMA OF EYELID [None]
  - EYE DISORDER [None]
  - HEADACHE [None]
  - VISION BLURRED [None]
